FAERS Safety Report 7510128-5 (Version None)
Quarter: 2011Q2

REPORT INFORMATION
  Report Type: 
  Country: None (occurrence: None)
  Receive Date: 20110527
  Receipt Date: 20110113
  Transmission Date: 20111010
  Serious: Yes (Other)
  Sender: FDA-Public Use
  Company Number: US-BAYER-2011-005832

PATIENT
  Age: 66 Year
  Sex: Female

DRUGS (2)
  1. AVELOX [Suspect]
     Indication: PNEUMONIA
     Dosage: 400 MG, QD
     Route: 042
     Dates: start: 20110107, end: 20110109
  2. EYE DROPS [Concomitant]

REACTIONS (3)
  - BLISTER [None]
  - INJECTION SITE EXTRAVASATION [None]
  - SKIN NECROSIS [None]
